FAERS Safety Report 25452853 (Version 1)
Quarter: 2025Q2

REPORT INFORMATION
  Report Type: Report from Study
  Country: JP (occurrence: JP)
  Receive Date: 20250618
  Receipt Date: 20250618
  Transmission Date: 20250716
  Serious: Yes (Hospitalization)
  Sender: EISAI
  Company Number: JP-Eisai-202503344_LEQ_P_1

PATIENT
  Age: 83 Year
  Sex: Female
  Weight: 47.5 kg

DRUGS (1)
  1. LECANEMAB [Suspect]
     Active Substance: LECANEMAB
     Indication: Cognitive disorder
     Dates: start: 20240612, end: 20240807

REACTIONS (2)
  - Erythema [Recovered/Resolved]
  - Infusion related reaction [Recovered/Resolved]

NARRATIVE: CASE EVENT DATE: 20240618
